FAERS Safety Report 6495657-8 (Version None)
Quarter: 2009Q4

REPORT INFORMATION
  Report Type: 
  Country: None (occurrence: None)
  Receive Date: 20091214
  Receipt Date: 20090729
  Transmission Date: 20100525
  Serious: No
  Sender: FDA-Public Use
  Company Number: US-BRISTOL-MYERS SQUIBB COMPANY-14720981

PATIENT
  Age: 67 Year
  Sex: Male

DRUGS (2)
  1. ABILIFY [Suspect]
     Dates: start: 20081219, end: 20090520
  2. TIKOSYN [Concomitant]

REACTIONS (1)
  - TARDIVE DYSKINESIA [None]
